FAERS Safety Report 5905092-6 (Version None)
Quarter: 2008Q3

REPORT INFORMATION
  Report Type: 
  Country: None (occurrence: None)
  Receive Date: 20080909
  Receipt Date: 20071211
  Transmission Date: 20090109
  Serious: Yes (Death)
  Sender: FDA-Public Use
  Company Number: 163-20785-07110587

PATIENT
  Age: 67 Year
  Sex: Male

DRUGS (3)
  1. THALOMID [Suspect]
     Indication: MULTIPLE MYELOMA
     Dosage: 350 MG, QD, ORAL ; 200MG-250MG-350MG, QD, ORAL
     Route: 048
     Dates: start: 20071023, end: 20070101
  2. THALOMID [Suspect]
     Indication: MULTIPLE MYELOMA
     Dosage: 350 MG, QD, ORAL ; 200MG-250MG-350MG, QD, ORAL
     Route: 048
     Dates: start: 20060501, end: 20071106
  3. THALOMID [Suspect]

REACTIONS (2)
  - MULTIPLE MYELOMA [None]
  - PNEUMONIA [None]
